FAERS Safety Report 6087275-0 (Version None)
Quarter: 2009Q1

REPORT INFORMATION
  Report Type: 
  Country: None (occurrence: None)
  Receive Date: 20090223
  Receipt Date: 20090216
  Transmission Date: 20090719
  Serious: Yes (Congenital Anomaly)
  Sender: FDA-Public Use
  Company Number: A0681136A

PATIENT
  Sex: Male

DRUGS (2)
  1. PAXIL CR [Suspect]
     Indication: ANXIETY
     Dosage: 12.5MG UNKNOWN
     Dates: start: 19990101, end: 20050301
  2. PAROXETINE HCL [Suspect]
     Indication: ANXIETY
     Dosage: 30MG UNKNOWN
     Dates: start: 20050401, end: 20050601

REACTIONS (5)
  - CARDIAC MURMUR [None]
  - DRUG EXPOSURE DURING PREGNANCY [None]
  - DRUG WITHDRAWAL SYNDROME NEONATAL [None]
  - MULTIPLE CONGENITAL ABNORMALITIES [None]
  - SPEECH DISORDER DEVELOPMENTAL [None]
